FAERS Safety Report 14431272 (Version 3)
Quarter: 2018Q1

REPORT INFORMATION
  Report Type: Report from Study
  Country: None (occurrence: US)
  Receive Date: 20180124
  Receipt Date: 20180227
  Transmission Date: 20180509
  Serious: Yes (Hospitalization, Other)
  Sender: FDA-Public Use
  Company Number: US-ABBVIE-18K-163-2232737-00

PATIENT
  Age: 26 Year
  Sex: Female
  Weight: 79.9 kg

DRUGS (1)
  1. HUMIRA [Suspect]
     Active Substance: ADALIMUMAB
     Indication: COLITIS ULCERATIVE
     Route: 058
     Dates: start: 201708

REACTIONS (9)
  - Pulmonary embolism [Recovering/Resolving]
  - Retroperitoneal haemorrhage [Recovering/Resolving]
  - Drug effect incomplete [Unknown]
  - Abortion spontaneous [Unknown]
  - Exposure during pregnancy [Unknown]
  - Haematoma [Recovering/Resolving]
  - Foetal death [Unknown]
  - Vomiting in pregnancy [Recovered/Resolved]
  - Colitis ulcerative [Recovering/Resolving]

NARRATIVE: CASE EVENT DATE: 201708
